FAERS Safety Report 12601192 (Version 1)
Quarter: 2016Q3

REPORT INFORMATION
  Report Type: Spontaneous
  Country: IT (occurrence: IT)
  Receive Date: 20160728
  Receipt Date: 20160728
  Transmission Date: 20161109
  Serious: Yes (Life-Threatening)
  Sender: FDA-Public Use
  Company Number: IT-WATSON-2016-11706

PATIENT
  Age: 90 Year
  Sex: Female

DRUGS (3)
  1. TEICOPLANIN [Concomitant]
     Active Substance: TEICOPLANIN
     Indication: ANTIBIOTIC THERAPY
     Dosage: 400 MG, DAILY
     Route: 065
  2. VANCOMYCIN (UNKNOWN) [Suspect]
     Active Substance: VANCOMYCIN
     Indication: ANTIBIOTIC THERAPY
     Dosage: 1000 MG, DAILY
     Route: 065
  3. TEICOPLANIN [Concomitant]
     Active Substance: TEICOPLANIN

REACTIONS (2)
  - Drug ineffective [Not Recovered/Not Resolved]
  - Pathogen resistance [Not Recovered/Not Resolved]

NARRATIVE: CASE EVENT DATE: 20120429
